FAERS Safety Report 4746239-7 (Version None)
Quarter: 2005Q3

REPORT INFORMATION
  Report Type: 
  Country: None (occurrence: None)
  Receive Date: 20050816
  Receipt Date: 20050804
  Transmission Date: 20060218
  Serious: Yes (Death, Hospitalization, Other)
  Sender: FDA-Public Use
  Company Number: USA050599183

PATIENT
  Age: 83 Year
  Sex: Male

DRUGS (5)
  1. ZYPREXA [Suspect]
     Indication: AGITATION
     Dosage: 2.5 MG DAY
     Dates: start: 20050519, end: 20050522
  2. ARICEPT [Concomitant]
  3. NADOLOL [Concomitant]
  4. LUVOX [Concomitant]
  5. ULTRAM [Concomitant]

REACTIONS (4)
  - CEREBRAL THROMBOSIS [None]
  - CONFUSIONAL STATE [None]
  - FALL [None]
  - HEAD INJURY [None]
